FAERS Safety Report 23597998 (Version 1)
Quarter: 2024Q1

REPORT INFORMATION
  Report Type: Report from Study
  Country: DE (occurrence: DE)
  Receive Date: 20240305
  Receipt Date: 20240305
  Transmission Date: 20240409
  Serious: Yes (Other)
  Sender: FDA-Public Use
  Company Number: DE-WW-2024-0097

PATIENT
  Age: 41 Year
  Sex: Female
  Weight: 108 kg

DRUGS (3)
  1. ESZOPICLONE [Suspect]
     Active Substance: ESZOPICLONE
     Indication: Initial insomnia
     Route: 048
     Dates: start: 20231024, end: 20231028
  2. LERCANIDIPINE [Concomitant]
     Active Substance: LERCANIDIPINE
     Indication: Hypertension
     Route: 048
  3. UNSPECIFIED INGREDIENT [Concomitant]
     Active Substance: UNSPECIFIED INGREDIENT
     Indication: Teratoma
     Route: 065

REACTIONS (2)
  - Hallucination [Recovered/Resolved]
  - Abdominal pain upper [Recovered/Resolved]

NARRATIVE: CASE EVENT DATE: 20231024
